FAERS Safety Report 7516781-4 (Version None)
Quarter: 2011Q2

REPORT INFORMATION
  Report Type: 
  Country: None (occurrence: None)
  Receive Date: 20110601
  Receipt Date: 20110526
  Transmission Date: 20111010
  Serious: Yes (Other)
  Sender: FDA-Public Use
  Company Number: PHHY2011JP31067

PATIENT
  Age: 82 Year
  Sex: Male

DRUGS (4)
  1. RIFAMPICIN [Suspect]
     Indication: TUBERCULOUS PLEURISY
     Dosage: 450 MG, UNK
     Route: 048
     Dates: start: 20070802, end: 20070810
  2. RIFAMPICIN [Suspect]
     Dosage: UNK
     Route: 048
     Dates: start: 20070910, end: 20070926
  3. ETAMBUTOL [Concomitant]
     Indication: TUBERCULOUS PLEURISY
     Route: 048
  4. ISONIAZID [Concomitant]
     Indication: TUBERCULOUS PLEURISY

REACTIONS (2)
  - DECREASED APPETITE [None]
  - PNEUMONIA [None]
